FAERS Safety Report 4462568-9 (Version None)
Quarter: 2004Q3

REPORT INFORMATION
  Report Type: 
  Country: None (occurrence: None)
  Receive Date: 20040924
  Receipt Date: 20040909
  Transmission Date: 20050211
  Serious: No
  Sender: FDA-Public Use
  Company Number: 238852

PATIENT
  Age: 58 Year
  Sex: Male
  Weight: 37 kg

DRUGS (4)
  1. NOVOLIN R [Suspect]
     Indication: INSULIN-REQUIRING TYPE II DIABETES MELLITUS
     Dosage: 9 5 IU, QD, BEFORE MEALS, SUBCUTANEOUS
     Route: 058
     Dates: start: 20040716, end: 20040810
  2. NOVOLIN N [Suspect]
     Indication: INSULIN-REQUIRING TYPE II DIABETES MELLITUS
     Dosage: 3-4 IU, QD, BEDTIME, SUBCUTANEOUS
     Route: 058
     Dates: start: 20040716, end: 20040810
  3. HUMULIN R [Concomitant]
  4. HUMALOG [Concomitant]

REACTIONS (4)
  - GLYCOSYLATED HAEMOGLOBIN INCREASED [None]
  - HEPATIC FUNCTION ABNORMAL [None]
  - HEPATIC STEATOSIS [None]
  - KETOSIS [None]
